FAERS Safety Report 8444833-3 (Version None)
Quarter: 2012Q2

REPORT INFORMATION
  Report Type: 
  Country: None (occurrence: None)
  Receive Date: 20120618
  Receipt Date: 20120611
  Transmission Date: 20120825
  Serious: Yes (Other)
  Sender: FDA-Public Use
  Company Number: PHHY2012CA050873

PATIENT
  Sex: Female
  Weight: 102 kg

DRUGS (1)
  1. CLOZARIL [Suspect]
     Indication: HALLUCINATION, AUDITORY
     Route: 048
     Dates: start: 20070905, end: 20071108

REACTIONS (7)
  - PULMONARY VALVE INCOMPETENCE [None]
  - TRICUSPID VALVE INCOMPETENCE [None]
  - MITRAL VALVE INCOMPETENCE [None]
  - AORTIC VALVE INCOMPETENCE [None]
  - AORTIC ARTERIOSCLEROSIS [None]
  - LEFT ATRIAL DILATATION [None]
  - DILATATION VENTRICULAR [None]
